FAERS Safety Report 7558825-X (Version None)
Quarter: 2011Q2

REPORT INFORMATION
  Report Type: 
  Country: None (occurrence: None)
  Receive Date: 20110621
  Receipt Date: 20110607
  Transmission Date: 20111010
  Serious: Yes (Hospitalization)
  Sender: FDA-Public Use
  Company Number: US-ROCHE-783042

PATIENT
  Sex: Female

DRUGS (2)
  1. TEMSIROLIMUS [Suspect]
     Dosage: LAST DOSE PRIOR TO SAE 21 JUN 2010
     Route: 042
     Dates: start: 20100308
  2. BEVACIZUMAB [Suspect]
     Dosage: LAST DOSE PRIOR TO SAE 7 JUN 2010
     Route: 042
     Dates: start: 20100308

REACTIONS (4)
  - PAIN [None]
  - DEHYDRATION [None]
  - RENAL FAILURE ACUTE [None]
  - HYPERKALAEMIA [None]
